FAERS Safety Report 9613147 (Version 1)
Quarter: 2013Q3

REPORT INFORMATION
  Report Type: Spontaneous
  Country: US (occurrence: None)
  Receive Date: 20130920
  Receipt Date: 20130920
  Transmission Date: 20140515
  Serious: Yes (Hospitalization)
  Sender: FDA-Public Use
  Company Number: AEUSA201300317

PATIENT
  Age: 56 Year
  Sex: Female
  Weight: 67.8 kg

DRUGS (23)
  1. GAMUNEX-C [Suspect]
     Indication: BLOOD ALCOHOL INCREASED
     Route: 042
     Dates: start: 20130509
  2. LASIX-K [Concomitant]
  3. PREDNISONE [Concomitant]
  4. ALBUTEROL /00139501/ [Concomitant]
  5. BUPROPION [Concomitant]
  6. FOLIC ACID [Concomitant]
  7. COMBIPATCH [Concomitant]
  8. FLUTICASONE [Concomitant]
  9. FUROSEMIDE [Concomitant]
  10. HYDROCODONE-ACETAMINOPHEN [Concomitant]
  11. HYDROXYCHLOROQUINE [Concomitant]
  12. LIOTHYRONINE [Concomitant]
  13. LORAZEPAM [Concomitant]
  14. METHOTREXATE [Concomitant]
  15. METHYLPHENIDATE [Concomitant]
  16. MISOPROSTOL [Concomitant]
  17. OMEGA-3 FATTY ACIDS [Concomitant]
  18. OMEPRAZOLE [Concomitant]
  19. CHOLECALICFERAL [Concomitant]
  20. CETIRIZINE [Concomitant]
  21. INSULIN [Concomitant]
  22. GAMUNEX [Concomitant]
  23. POLYGAM S/D /01439801/ [Concomitant]

REACTIONS (5)
  - Headache [None]
  - Blood lactate dehydrogenase increased [None]
  - Microcytic anaemia [None]
  - Weight decreased [None]
  - Anaemia of chronic disease [None]
